FAERS Safety Report 5990614-X (Version None)
Quarter: 2008Q4

REPORT INFORMATION
  Report Type: 
  Country: None (occurrence: None)
  Receive Date: 20081211
  Receipt Date: 20081205
  Transmission Date: 20090506
  Serious: Yes (Death, Hospitalization)
  Sender: FDA-Public Use
  Company Number: A0759920A

PATIENT
  Age: 63 Year
  Sex: Male
  Weight: 90.9 kg

DRUGS (3)
  1. AVANDIA [Suspect]
     Dosage: 4MG PER DAY
     Route: 048
     Dates: start: 20000329, end: 20050811
  2. ASPIRIN [Concomitant]
  3. ACTOS [Concomitant]

REACTIONS (7)
  - CARDIAC DISORDER [None]
  - CARDIAC FAILURE [None]
  - CARDIAC FAILURE CONGESTIVE [None]
  - DYSPNOEA [None]
  - FATIGUE [None]
  - OEDEMA [None]
  - OEDEMA PERIPHERAL [None]
